FAERS Safety Report 10881531 (Version 2)
Quarter: 2016Q2

REPORT INFORMATION
  Report Type: Report from Study
  Country: US (occurrence: US)
  Receive Date: 20150303
  Receipt Date: 20160513
  Transmission Date: 20160815
  Serious: Yes (Other)
  Sender: FDA-Public Use
  Company Number: US-AMGEN-USASL2015019421

PATIENT
  Age: 80 Year
  Sex: Female

DRUGS (2)
  1. ENBREL [Suspect]
     Active Substance: ETANERCEPT
     Dosage: 50 MG, ONCE EVERY 10 DAYS
     Route: 065
  2. ENBREL [Suspect]
     Active Substance: ETANERCEPT
     Indication: RHEUMATOID ARTHRITIS
     Dosage: UNK UNK, QWK
     Route: 065
     Dates: start: 2012

REACTIONS (15)
  - Urinary retention [Not Recovered/Not Resolved]
  - Urine odour abnormal [Not Recovered/Not Resolved]
  - Back pain [Unknown]
  - Pain [Unknown]
  - Asthma [Unknown]
  - Arthralgia [Unknown]
  - Osteoarthritis [Unknown]
  - Influenza [Recovered/Resolved]
  - Dysuria [Not Recovered/Not Resolved]
  - Bronchitis [Recovered/Resolved]
  - Paralysis [Unknown]
  - Cystitis [Not Recovered/Not Resolved]
  - Bone pain [Recovered/Resolved]
  - Osteoporosis [Unknown]
  - Intentional product misuse [Unknown]

NARRATIVE: CASE EVENT DATE: 2015
